FAERS Safety Report 10033380 (Version 1)
Quarter: 2014Q1

REPORT INFORMATION
  Report Type: Spontaneous
  Country: CA (occurrence: CA)
  Receive Date: 20140325
  Receipt Date: 20140325
  Transmission Date: 20141002
  Serious: Yes (Other)
  Sender: FDA-Public Use
  Company Number: CA-ROCHE-1368708

PATIENT
  Age: 50 Year
  Sex: Male

DRUGS (1)
  1. TENECTEPLASE [Suspect]
     Indication: ACUTE MYOCARDIAL INFARCTION
     Route: 065

REACTIONS (3)
  - Accelerated idioventricular rhythm [Unknown]
  - Reperfusion arrhythmia [Unknown]
  - Electrocardiogram ST segment elevation [Unknown]
